FAERS Safety Report 17327444 (Version 3)
Quarter: 2020Q2

REPORT INFORMATION
  Report Type: Report from Study
  Country: AU (occurrence: AU)
  Receive Date: 20200127
  Receipt Date: 20200615
  Transmission Date: 20200713
  Serious: Yes (Other)
  Sender: FDA-Public Use
  Company Number: AU-JNJFOC-20200123923

PATIENT
  Age: 79 Year
  Sex: Male

DRUGS (2)
  1. STELARA [Suspect]
     Active Substance: USTEKINUMAB
     Route: 058
  2. STELARA [Suspect]
     Active Substance: USTEKINUMAB
     Indication: CROHN^S DISEASE
     Route: 042
     Dates: start: 20200115, end: 20200115

REACTIONS (6)
  - Chest pain [Unknown]
  - Infusion related reaction [Unknown]
  - Heart rate irregular [Unknown]
  - Off label use [Unknown]
  - Incorrect dose administered [Unknown]
  - Surgery [Unknown]

NARRATIVE: CASE EVENT DATE: 20200115
